FAERS Safety Report 11281295 (Version 2)
Quarter: 2016Q1

REPORT INFORMATION
  Report Type: Spontaneous
  Country: TR (occurrence: TR)
  Receive Date: 20150717
  Receipt Date: 20160309
  Transmission Date: 20160525
  Serious: Yes (Hospitalization)
  Sender: FDA-Public Use
  Company Number: TR-IMPAX LABORATORIES, INC-2015-IPXL-00768

PATIENT
  Age: 49 Year
  Sex: Female

DRUGS (7)
  1. RISPERIDONE DEPO [Concomitant]
     Indication: SCHIZOPHRENIA
     Dosage: 50 MG, 2 /MONTH
     Route: 030
  2. PRIMIDONE. [Suspect]
     Active Substance: PRIMIDONE
     Indication: TREMOR
     Dosage: UNK
     Route: 065
  3. AMISULPRIDE [Concomitant]
     Active Substance: AMISULPRIDE
     Indication: SCHIZOPHRENIA
     Dosage: 800 MG, DAILY
     Route: 065
  4. BIPERIDEN [Concomitant]
     Active Substance: BIPERIDEN
     Indication: SCHIZOPHRENIA
     Dosage: 4 MG, 1 /DAY
     Route: 065
  5. PRIMIDONE. [Suspect]
     Active Substance: PRIMIDONE
     Dosage: 500 MG, 1 /DAY
     Route: 065
  6. DIVALPROEX SODIUM ER [Suspect]
     Active Substance: DIVALPROEX SODIUM
     Indication: SCHIZOPHRENIA
     Dosage: 1000 MG, 1 /DAY
     Route: 065
  7. RISPERIDONE. [Suspect]
     Active Substance: RISPERIDONE
     Indication: SCHIZOPHRENIA
     Dosage: 2 MG, 1 /DAY
     Route: 065

REACTIONS (5)
  - Neuroleptic malignant syndrome [Recovered/Resolved]
  - Leukopenia [Recovered/Resolved]
  - Drug interaction [Recovered/Resolved]
  - Drug withdrawal syndrome [Unknown]
  - Thrombocytopenia [Recovered/Resolved]
